FAERS Safety Report 16304425 (Version 2)
Quarter: 2019Q2

REPORT INFORMATION
  Report Type: Report from Study
  Country: US (occurrence: US)
  Receive Date: 20190513
  Receipt Date: 20190614
  Transmission Date: 20190711
  Serious: Yes (Hospitalization, Other)
  Sender: FDA-Public Use
  Company Number: US-BAYER-2019-062066

PATIENT
  Age: 61 Year
  Sex: Male

DRUGS (3)
  1. METFORMIN [Concomitant]
     Active Substance: METFORMIN HYDROCHLORIDE
     Indication: DIABETES MELLITUS
  2. NEXAVAR [Suspect]
     Active Substance: SORAFENIB
     Indication: HEPATOCELLULAR CARCINOMA
     Dosage: 400 MG, BID
     Route: 048
     Dates: start: 20190223, end: 2019
  3. NEXAVAR [Suspect]
     Active Substance: SORAFENIB
     Indication: HEPATOCELLULAR CARCINOMA
     Dosage: DAILY DOSE 400 MG
     Route: 048
     Dates: start: 2019, end: 20190515

REACTIONS (16)
  - Ammonia increased [Not Recovered/Not Resolved]
  - Decreased appetite [None]
  - Diarrhoea [Not Recovered/Not Resolved]
  - Blood pressure systolic increased [None]
  - Diarrhoea [Recovered/Resolved]
  - Fatigue [None]
  - Ascites [Not Recovered/Not Resolved]
  - Polyp [Recovered/Resolved with Sequelae]
  - Hepatocellular carcinoma [Unknown]
  - Haemorrhoids [Recovered/Resolved with Sequelae]
  - Poor quality sleep [None]
  - Blood glucose decreased [None]
  - Headache [Not Recovered/Not Resolved]
  - Fatigue [Not Recovered/Not Resolved]
  - Drug ineffective [Unknown]
  - Ulcer [Recovered/Resolved with Sequelae]

NARRATIVE: CASE EVENT DATE: 2019
